FAERS Safety Report 5624243-4 (Version None)
Quarter: 2008Q1

REPORT INFORMATION
  Report Type: 
  Country: None (occurrence: None)
  Receive Date: 20080213
  Receipt Date: 20080130
  Transmission Date: 20080703
  Serious: Yes (Other)
  Sender: FDA-Public Use
  Company Number: PHFR2008GB00733

PATIENT
  Sex: Male

DRUGS (1)
  1. EXELON [Suspect]
     Indication: PARKINSON'S DISEASE
     Route: 062

REACTIONS (2)
  - MIDDLE INSOMNIA [None]
  - TRANSIENT ISCHAEMIC ATTACK [None]
